FAERS Safety Report 7042113-4 (Version None)
Quarter: 2010Q4

REPORT INFORMATION
  Report Type: 
  Country: None (occurrence: None)
  Receive Date: 20101013
  Receipt Date: 20100618
  Transmission Date: 20110411
  Serious: No
  Sender: FDA-Public Use
  Company Number: US-ASTRAZENECA-2010SE28663

PATIENT
  Sex: Female
  Weight: 49.9 kg

DRUGS (10)
  1. SYMBICORT [Suspect]
     Dosage: 80/4.5 TWO PUFFS BID
     Route: 055
     Dates: start: 20080101
  2. OXYCODONE HCL [Concomitant]
  3. COREG [Concomitant]
  4. DIOVAN [Concomitant]
  5. ESTRADIOL [Concomitant]
  6. CELEXA [Concomitant]
  7. XANAX [Concomitant]
  8. FIORICET [Concomitant]
  9. ALBUTEROL [Concomitant]
  10. VENTOLIN [Concomitant]

REACTIONS (2)
  - DRUG DOSE OMISSION [None]
  - DYSPNOEA [None]
